FAERS Safety Report 9922815 (Version 8)
Quarter: 2014Q3

REPORT INFORMATION
  Report Type: Spontaneous
  Country: US (occurrence: US)
  Receive Date: 20140225
  Receipt Date: 20140814
  Transmission Date: 20150326
  Serious: Yes (Hospitalization, Other)
  Sender: FDA-Public Use
  Company Number: US-GILEAD-2014-0095187

PATIENT
  Age: 64 Year
  Sex: Male
  Weight: 109.75 kg

DRUGS (8)
  1. LETAIRIS [Suspect]
     Active Substance: AMBRISENTAN
     Indication: PULMONARY ARTERIAL HYPERTENSION
     Dosage: 10 MG, QD
     Route: 065
     Dates: start: 20120814
  2. REVATIO [Suspect]
     Active Substance: SILDENAFIL CITRATE
     Indication: PULMONARY HYPERTENSION
     Dosage: 20 MG, TID
     Route: 065
  3. LETAIRIS [Suspect]
     Active Substance: AMBRISENTAN
     Indication: EMPHYSEMA
  4. ZOLOFT [Concomitant]
     Active Substance: SERTRALINE HYDROCHLORIDE
     Dosage: UNK
  5. LETAIRIS [Suspect]
     Active Substance: AMBRISENTAN
     Indication: OBESITY
  6. LETAIRIS [Suspect]
     Active Substance: AMBRISENTAN
     Indication: CHRONIC OBSTRUCTIVE PULMONARY DISEASE
  7. LETAIRIS [Suspect]
     Active Substance: AMBRISENTAN
     Indication: SLEEP APNOEA SYNDROME
  8. ALPRAZOLAM. [Concomitant]
     Active Substance: ALPRAZOLAM
     Dosage: UNK

REACTIONS (18)
  - Cardiac failure congestive [Unknown]
  - Hypotension [Unknown]
  - Oxygen saturation decreased [Unknown]
  - Hypoxia [Unknown]
  - Hearing impaired [Unknown]
  - Bacterial infection [Unknown]
  - Middle insomnia [Unknown]
  - Morbid thoughts [Unknown]
  - Cystitis [Unknown]
  - Pyrexia [Unknown]
  - Feeling cold [Unknown]
  - Haemorrhage [Unknown]
  - Weight decreased [Unknown]
  - Unevaluable event [Unknown]
  - Urinary tract infection [Unknown]
  - Malaise [Unknown]
  - Vessel puncture site reaction [Unknown]
  - Asthenia [Unknown]

NARRATIVE: CASE EVENT DATE: 201402
